FAERS Safety Report 6907303-7 (Version None)
Quarter: 2010Q3

REPORT INFORMATION
  Report Type: 
  Country: None (occurrence: None)
  Receive Date: 20100730
  Receipt Date: 20090128
  Transmission Date: 20110219
  Serious: Yes (Other)
  Sender: FDA-Public Use
  Company Number: 001

PATIENT
  Age: 55 Year
  Sex: Female

DRUGS (1)
  1. DR. FRANK'S  JOINT + MUSCLE PAIN RELIEF [Suspect]
     Indication: ARTHRALGIA
     Dosage: 4 SPRAYS 4X/DAY

REACTIONS (1)
  - MUSCLE DISORDER [None]
